FAERS Safety Report 5463920-5 (Version None)
Quarter: 2007Q3

REPORT INFORMATION
  Report Type: 
  Country: None (occurrence: None)
  Receive Date: 20070921
  Receipt Date: 20070703
  Transmission Date: 20080115
  Serious: No
  Sender: FDA-Public Use
  Company Number: A0653053A

PATIENT
  Age: 62 Year
  Sex: Female
  Weight: 110.5 kg

DRUGS (5)
  1. AVANDARYL [Suspect]
     Dosage: 1TAB PER DAY
     Route: 048
     Dates: start: 20061201, end: 20070525
  2. NIFEDIPINE [Concomitant]
  3. LASIX [Concomitant]
  4. ASPIRIN [Concomitant]
  5. SINGULAIR [Concomitant]

REACTIONS (4)
  - DYSPNOEA [None]
  - FEELING ABNORMAL [None]
  - RASH [None]
  - WEIGHT INCREASED [None]
